FAERS Safety Report 8151084-9 (Version None)
Quarter: 2012Q1

REPORT INFORMATION
  Report Type: 
  Country: None (occurrence: None)
  Receive Date: 20120220
  Receipt Date: 20120209
  Transmission Date: 20120608
  Serious: Yes (Other)
  Sender: FDA-Public Use
  Company Number: FR-MERCK-1201FRA00051

PATIENT
  Age: 28 Year
  Sex: Male

DRUGS (12)
  1. EMEND [Suspect]
     Route: 048
     Dates: start: 20111215, end: 20111216
  2. EMEND [Suspect]
     Route: 048
     Dates: start: 20111214, end: 20111214
  3. EMEND [Suspect]
     Route: 048
     Dates: start: 20111229, end: 20111230
  4. EMEND [Suspect]
     Route: 048
     Dates: start: 20111228, end: 20111228
  5. IRINOTECAN HCL [Suspect]
     Indication: COLORECTAL CANCER
     Route: 065
     Dates: start: 20110801, end: 20120111
  6. FLUOROURACIL [Concomitant]
     Indication: COLORECTAL CANCER
     Route: 065
  7. FOLIC ACID [Concomitant]
     Route: 065
  8. EMEND [Suspect]
     Route: 048
     Dates: start: 20120111, end: 20120111
  9. EMEND [Suspect]
     Route: 048
     Dates: start: 20111130, end: 20111130
  10. IRINOTECAN HCL [Suspect]
     Route: 065
     Dates: start: 20120201
  11. ATROPINE [Concomitant]
     Route: 065
  12. EMEND [Suspect]
     Route: 048
     Dates: start: 20111201, end: 20111202

REACTIONS (3)
  - DRUG INTERACTION [None]
  - LIPASE INCREASED [None]
  - METASTASES TO PANCREAS [None]
